FAERS Safety Report 4598676-1 (Version None)
Quarter: 2005Q1

REPORT INFORMATION
  Report Type: 
  Country: None (occurrence: None)
  Receive Date: 20050304
  Receipt Date: 20050223
  Transmission Date: 20050727
  Serious: Yes (Hospitalization)
  Sender: FDA-Public Use
  Company Number: CA-JNJFOC-20050300112

PATIENT
  Sex: Female

DRUGS (1)
  1. ORTHO-NOVUM [Suspect]
     Indication: CONTRACEPTION
     Route: 049

REACTIONS (1)
  - BREAST ABSCESS [None]
